FAERS Safety Report 22152562 (Version 2)
Quarter: 2023Q2

REPORT INFORMATION
  Report Type: Report from Study
  Country: DE (occurrence: None)
  Receive Date: 20230329
  Receipt Date: 20230402
  Transmission Date: 20230721
  Serious: Yes (Hospitalization)
  Sender: FDA-Public Use
  Company Number: DE-ROCHE-3316868

PATIENT
  Age: 84 Year
  Sex: Female
  Weight: 69 kg

DRUGS (12)
  1. TRASTUZUMAB [Suspect]
     Active Substance: TRASTUZUMAB
     Indication: Breast cancer metastatic
     Dosage: DATE OF LAST DOSE PRIOR TO SAE/AESI 08/MAR/2023
     Route: 041
     Dates: start: 20230104
  2. PERTUZUMAB [Suspect]
     Active Substance: PERTUZUMAB
     Indication: Breast cancer metastatic
     Dosage: DATE OF LAST DOSE PRIOR TO SAE/AESI 08/MAR/2023
     Route: 042
     Dates: start: 20230104
  3. FENTANYL [Concomitant]
     Active Substance: FENTANYL
     Dates: start: 20220601
  4. GRANISETRON [Concomitant]
     Active Substance: GRANISETRON
     Dates: start: 20230104
  5. INNOHEP [Concomitant]
     Active Substance: TINZAPARIN SODIUM
     Dates: start: 20180101
  6. LECANIDIPINE [Concomitant]
     Dates: start: 19900101
  7. LISINOPRIL [Concomitant]
     Active Substance: LISINOPRIL
     Dates: start: 19900101
  8. LOPERAMIDE [Concomitant]
     Active Substance: LOPERAMIDE
     Dates: start: 20230104
  9. MCP [Concomitant]
     Active Substance: METOCLOPRAMIDE HYDROCHLORIDE
     Dates: start: 20230104
  10. MOVICOL [Concomitant]
     Active Substance: POLYETHYLENE GLYCOL 3350\POTASSIUM CHLORIDE\SODIUM BICARBONATE\SODIUM CHLORIDE
     Dates: start: 20160101
  11. PANTOPRAZOLE SODIUM [Concomitant]
     Active Substance: PANTOPRAZOLE SODIUM
     Dates: start: 20160101
  12. SIMVASTATIN [Concomitant]
     Active Substance: SIMVASTATIN
     Dates: start: 20040101

REACTIONS (1)
  - Cardiac failure [Unknown]

NARRATIVE: CASE EVENT DATE: 20230321
